FAERS Safety Report 15128974 (Version 2)
Quarter: 2018Q3

REPORT INFORMATION
  Report Type: Spontaneous
  Country: FR (occurrence: FR)
  Receive Date: 20180711
  Receipt Date: 20180720
  Transmission Date: 20181010
  Serious: Yes (Hospitalization, Other)
  Sender: FDA-Public Use
  Company Number: FR-BRISTOL-MYERS SQUIBB COMPANY-BMS-2018-062042

PATIENT
  Age: 81 Year
  Sex: Female

DRUGS (10)
  1. LAMOTRIGINE. [Suspect]
     Active Substance: LAMOTRIGINE
     Indication: PRODUCT USED FOR UNKNOWN INDICATION
     Dosage: 2600 MG, UNK
     Route: 048
     Dates: start: 20180515, end: 20180515
  2. ELIQUIS [Suspect]
     Active Substance: APIXABAN
     Indication: POISONING DELIBERATE
     Dosage: 30 MG, TOTAL
     Route: 048
     Dates: start: 20180515, end: 20180515
  3. DIFFU K [Suspect]
     Active Substance: POTASSIUM CHLORIDE
     Indication: POISONING DELIBERATE
     Dosage: 7800 MG, TOTAL
     Route: 048
     Dates: start: 20180515, end: 20180515
  4. BISOCE [Suspect]
     Active Substance: BISOPROLOL
     Indication: POISONING DELIBERATE
     Dosage: 15 MG, TOTAL
     Route: 048
     Dates: start: 20180515, end: 20180515
  5. SERESTA [Suspect]
     Active Substance: OXAZEPAM
     Indication: POISONING DELIBERATE
     Dosage: 60 MG, TOTAL
     Route: 048
     Dates: start: 20180515, end: 20180515
  6. DAFALGAN CODEINE [Suspect]
     Active Substance: ACETAMINOPHEN\CODEINE PHOSPHATE
     Indication: POISONING DELIBERATE
     Dosage: 24 G, TOTAL
     Route: 048
     Dates: start: 20180515, end: 20180515
  7. PANTOPRAZOLE [Suspect]
     Active Substance: PANTOPRAZOLE
     Indication: POISONING DELIBERATE
     Dosage: 120 MG, TOTAL
     Route: 048
     Dates: start: 20180515, end: 20180515
  8. LAMOTRIGINE. [Suspect]
     Active Substance: LAMOTRIGINE
     Indication: POISONING DELIBERATE
     Dosage: 600 MG, TOTAL
     Route: 048
     Dates: start: 20180515, end: 20180515
  9. LASILIX [Suspect]
     Active Substance: FUROSEMIDE
     Indication: POISONING DELIBERATE
     Dosage: 360 MG, TOTAL
     Route: 048
     Dates: start: 20180515, end: 20180515
  10. KEPPRA [Suspect]
     Active Substance: LEVETIRACETAM
     Indication: POISONING DELIBERATE
     Dosage: 6000 MG, TOTAL
     Route: 048
     Dates: start: 20180515, end: 20180515

REACTIONS (6)
  - Coma [Recovering/Resolving]
  - Hypotension [Recovering/Resolving]
  - Bradypnoea [Recovering/Resolving]
  - Poisoning deliberate [Unknown]
  - Intentional overdose [Unknown]
  - Bradycardia [Recovering/Resolving]

NARRATIVE: CASE EVENT DATE: 20180515
